FAERS Safety Report 20553783 (Version 1)
Quarter: 2022Q1

REPORT INFORMATION
  Report Type: Spontaneous
  Country: US (occurrence: US)
  Receive Date: 20220304
  Receipt Date: 20220304
  Transmission Date: 20220423
  Serious: Yes (Hospitalization, Other)
  Sender: FDA-Public Use
  Company Number: US-LA JOLLA PHARMACEUTICAL COMPANY-0000405

PATIENT

DRUGS (7)
  1. GIAPREZA [Suspect]
     Active Substance: ANGIOTENSIN II
     Indication: Vasoplegia syndrome
  2. NOREPINEPHRINE [Concomitant]
     Active Substance: NOREPINEPHRINE
     Indication: Vasoplegia syndrome
     Dosage: 0.4 MCG/KG/MIN
  3. VASOPRESSIN [Concomitant]
     Active Substance: VASOPRESSIN
     Indication: Vasoplegia syndrome
     Dosage: 0.06 UNITS/MIN
  4. HYDROCORTISONE [Concomitant]
     Active Substance: HYDROCORTISONE
     Indication: Product used for unknown indication
     Dosage: UNK
     Route: 065
  5. METHYLENE BLUE [Concomitant]
     Active Substance: METHYLENE BLUE
     Indication: Product used for unknown indication
     Route: 065
  6. THIAMINE [Concomitant]
     Active Substance: THIAMINE
  7. ASCORBIC ACID [Concomitant]
     Active Substance: ASCORBIC ACID

REACTIONS (3)
  - Pulmonary arterial pressure increased [Recovered/Resolved]
  - Blood pressure decreased [Recovered/Resolved]
  - Peripheral ischaemia [Unknown]
